FAERS Safety Report 4348124-1 (Version None)
Quarter: 2004Q2

REPORT INFORMATION
  Report Type: 
  Country: None (occurrence: None)
  Receive Date: 20040422
  Receipt Date: 20040408
  Transmission Date: 20050107
  Serious: Yes (Hospitalization)
  Sender: FDA-Public Use
  Company Number: GBR-2004-0000977

PATIENT
  Age: 54 Year
  Sex: Male
  Weight: 85 kg

DRUGS (5)
  1. DIHYDROCODEINE BITARTRATE INJ [Suspect]
  2. RAMIPRIL [Suspect]
     Indication: HYPERTENSION
     Dosage: 2.5 MG, DAILY, ORAL
     Route: 048
  3. AMLODIPINE [Suspect]
     Indication: HYPERTENSION
     Dosage: 5 MG, DAILY, ORAL
     Route: 048
  4. BENDROFLUAZIDE (BENDROFLUMETHIAZIDE) [Suspect]
     Indication: HYPERTENSION
     Dosage: 2.5 MG, DAILY, ORAL
     Route: 048
  5. DICLOFENAC (DICLOFENAC) [Suspect]

REACTIONS (3)
  - ANAPHYLACTOID REACTION [None]
  - GENERALISED OEDEMA [None]
  - SWELLING FACE [None]
